FAERS Safety Report 9214470 (Version 2)
Quarter: 2013Q2

REPORT INFORMATION
  Report Type: Report from Study
  Country: JP (occurrence: JP)
  Receive Date: 20130405
  Receipt Date: 20130620
  Transmission Date: 20140414
  Serious: Yes (Other)
  Sender: FDA-Public Use
  Company Number: JP-ROCHE-1209963

PATIENT
  Age: 71 Year
  Sex: Female
  Weight: 46 kg

DRUGS (9)
  1. PEG-INTERFERON ALFA 2A [Suspect]
     Indication: HEPATIC CIRRHOSIS
     Route: 058
     Dates: start: 20110725, end: 20111003
  2. RIBAVIRIN [Suspect]
     Indication: HEPATIC CIRRHOSIS
     Route: 048
     Dates: start: 20110725, end: 20110821
  3. RIBAVIRIN [Suspect]
     Indication: HEPATIC CIRRHOSIS
     Route: 048
     Dates: start: 20110822, end: 20110823
  4. RIBAVIRIN [Suspect]
     Indication: HEPATIC CIRRHOSIS
     Route: 048
     Dates: start: 20110824, end: 20110919
  5. RIBAVIRIN [Suspect]
     Indication: HEPATIC CIRRHOSIS
     Route: 048
     Dates: start: 20110920, end: 20110920
  6. RIBAVIRIN [Suspect]
     Indication: HEPATIC CIRRHOSIS
     Route: 048
     Dates: start: 20110921, end: 20111010
  7. STARSIS [Concomitant]
     Route: 048
  8. AVAPRO [Concomitant]
     Route: 048
     Dates: end: 20110925
  9. HUMALOG MIX [Concomitant]
     Dosage: THREE CYLINDER X1 MONTH
     Route: 065
     Dates: end: 20120115

REACTIONS (1)
  - Autoimmune hepatitis [Recovered/Resolved]
